FAERS Safety Report 23479359 (Version 2)
Quarter: 2024Q1

REPORT INFORMATION
  Report Type: Report from Study
  Country: US (occurrence: US)
  Receive Date: 20240205
  Receipt Date: 20240207
  Transmission Date: 20240409
  Serious: Yes (Other)
  Sender: FDA-Public Use
  Company Number: US-UCBSA-2024001028

PATIENT
  Age: 18 Year
  Sex: Female
  Weight: 47.5 kg

DRUGS (2)
  1. FINTEPLA [Suspect]
     Active Substance: FENFLURAMINE
     Indication: Lennox-Gastaut syndrome
     Dosage: 6 MILLILITER, 2X/DAY (BID), (0.533 MG/KG/DAY)
     Route: 048
     Dates: start: 20221114
  2. FINTEPLA [Suspect]
     Active Substance: FENFLURAMINE
     Dosage: 6.4 MILLILITER, 2X/DAY (BID), (0.6 MILLIGRAM/KILOGRAM PER DAY)
     Route: 048
     Dates: start: 20240103

REACTIONS (3)
  - Mitral valve incompetence [Not Recovered/Not Resolved]
  - Prescribed overdose [Unknown]
  - Off label use [Unknown]

NARRATIVE: CASE EVENT DATE: 20240103
